FAERS Safety Report 24951327 (Version 1)
Quarter: 2025Q1

REPORT INFORMATION
  Report Type: Spontaneous
  Country: FR (occurrence: FR)
  Receive Date: 20250210
  Receipt Date: 20250210
  Transmission Date: 20250409
  Serious: Yes (Other)
  Sender: SANDOZ
  Company Number: FR-SANDOZ-SDZ2024FR015602

PATIENT
  Age: 66 Year
  Sex: Female

DRUGS (2)
  1. ACLASTA [Suspect]
     Active Substance: ZOLEDRONIC ACID
     Indication: Osteoporosis postmenopausal
     Dosage: 1 DF, Q12MO
     Route: 065
  2. ACLASTA [Suspect]
     Active Substance: ZOLEDRONIC ACID
     Route: 065

REACTIONS (8)
  - Tibia fracture [Unknown]
  - Glaucoma [Unknown]
  - Retrobulbar oedema [Unknown]
  - Autoimmune disorder [Unknown]
  - Eye pain [Unknown]
  - Swelling face [Unknown]
  - Inflammation [Unknown]
  - Influenza like illness [Unknown]
